FAERS Safety Report 9455220 (Version 2)
Quarter: 2013Q3

REPORT INFORMATION
  Report Type: Spontaneous
  Country: US (occurrence: US)
  Receive Date: 20130813
  Receipt Date: 20130828
  Transmission Date: 20140515
  Serious: Yes (Other)
  Sender: FDA-Public Use
  Company Number: US-BAYER-2013-097359

PATIENT
  Age: 34 Year
  Sex: Female
  Weight: 79 kg

DRUGS (3)
  1. BETASERON [Suspect]
     Indication: MULTIPLE SCLEROSIS
     Dosage: 0.25 MG (1ML), QOD
     Route: 058
     Dates: start: 2007, end: 2013
  2. BACLOFEN [Concomitant]
     Dosage: 10 MG, UNK
  3. OCELLA [Concomitant]

REACTIONS (1)
  - Multiple sclerosis relapse [Recovering/Resolving]
